FAERS Safety Report 7356170-9 (Version None)
Quarter: 2011Q1

REPORT INFORMATION
  Report Type: 
  Country: None (occurrence: None)
  Receive Date: 20110316
  Receipt Date: 20110311
  Transmission Date: 20110831
  Serious: Yes (Hospitalization, Other)
  Sender: FDA-Public Use
  Company Number: US-PFIZER INC-2006031649

PATIENT
  Sex: Female

DRUGS (6)
  1. NEURONTIN [Suspect]
     Dosage: 100 MG, UNK
     Dates: start: 19980525
  2. NEURONTIN [Suspect]
     Dosage: UNK
     Dates: start: 19990729
  3. NEURONTIN [Suspect]
     Dosage: 400 MG, UNK
     Dates: start: 19991201
  4. NEURONTIN [Suspect]
     Indication: BIPOLAR I DISORDER
     Dosage: 300 MG, UNK
     Route: 048
     Dates: start: 19980512
  5. ALCOHOL [Suspect]
     Indication: ILL-DEFINED DISORDER
     Route: 048
  6. CELEXA [Concomitant]
     Dosage: 80 MG, UNK
     Route: 048
     Dates: start: 19990729

REACTIONS (4)
  - INTENTIONAL DRUG MISUSE [None]
  - ALCOHOL POISONING [None]
  - SUICIDAL IDEATION [None]
  - SUICIDE ATTEMPT [None]
